FAERS Safety Report 4335251-8 (Version None)
Quarter: 2004Q2

REPORT INFORMATION
  Report Type: 
  Country: None (occurrence: None)
  Receive Date: 20040408
  Receipt Date: 20040401
  Transmission Date: 20050107
  Serious: Yes (Hospitalization)
  Sender: FDA-Public Use
  Company Number: DK-MERCK-0404DNK00002

PATIENT
  Age: 71 Year
  Sex: Male

DRUGS (3)
  1. ASPIRIN [Concomitant]
     Route: 065
  2. RAMIPRIL [Concomitant]
     Route: 065
     Dates: start: 20030409
  3. VIOXX [Suspect]
     Route: 048
     Dates: start: 20030409, end: 20030415

REACTIONS (6)
  - ATRIAL FIBRILLATION [None]
  - ATRIOVENTRICULAR BLOCK FIRST DEGREE [None]
  - CHEST DISCOMFORT [None]
  - HEART RATE INCREASED [None]
  - HEART RATE IRREGULAR [None]
  - MALAISE [None]
